FAERS Safety Report 6096543-8 (Version None)
Quarter: 2009Q1

REPORT INFORMATION
  Report Type: 
  Country: None (occurrence: None)
  Receive Date: 20090225
  Receipt Date: 20090225
  Transmission Date: 20090719
  Serious: Yes (Other)
  Sender: FDA-Public Use
  Company Number: None

PATIENT
  Age: 80 Year
  Sex: Female
  Weight: 62.1428 kg

DRUGS (1)
  1. METOPROLOL SR 25MG [Suspect]
     Indication: PALPITATIONS
     Dosage: 25MG BID P.O. 047
     Route: 048
     Dates: start: 20070108, end: 20070731

REACTIONS (1)
  - PALPITATIONS [None]
